APPROVED DRUG PRODUCT: RILUZOLE
Active Ingredient: RILUZOLE
Strength: 50MG
Dosage Form/Route: TABLET;ORAL
Application: A203042 | Product #001
Applicant: PHARMOBEDIENT CONSULTING LLC
Approved: Jul 1, 2013 | RLD: No | RS: No | Type: DISCN